FAERS Safety Report 4653155-8 (Version None)
Quarter: 2005Q2

REPORT INFORMATION
  Report Type: 
  Country: None (occurrence: None)
  Receive Date: 20050503
  Receipt Date: 20050426
  Transmission Date: 20051028
  Serious: Yes (Disabling, Other)
  Sender: FDA-Public Use
  Company Number: 2005065308

PATIENT
  Sex: Female
  Weight: 67.1324 kg

DRUGS (9)
  1. LIPITOR [Suspect]
     Indication: ILL-DEFINED DISORDER
     Dosage: ORAL
     Route: 048
  2. LOSARTAN POTASSIUM [Concomitant]
  3. CLOPIDOGREL BISULFATE [Concomitant]
  4. TRIOBE (CYANOCABALAMIN, FOLIC ACID, PYRIDOXINE) [Concomitant]
  5. MULTIVITAMINS (ASCROBIC ACID, ERGOCALCIFEROL, FOLIC ACID, NICOTINAMIDE [Concomitant]
  6. MAGNESIUM (MAGNESIUM) [Concomitant]
  7. MEOPROLOL SUCCINATE (METOPROLOL SUCCINATE) [Concomitant]
  8. CALCIUM (CALCIUM) [Concomitant]
  9. ASPIRIN [Concomitant]

REACTIONS (7)
  - CHRONIC FATIGUE SYNDROME [None]
  - CONDITION AGGRAVATED [None]
  - CONSTIPATION [None]
  - DIFFICULTY IN WALKING [None]
  - DYSSTASIA [None]
  - EPSTEIN-BARR VIRUS INFECTION [None]
  - FIBROMYALGIA [None]
